FAERS Safety Report 8208581-7 (Version None)
Quarter: 2012Q1

REPORT INFORMATION
  Report Type: 
  Country: None (occurrence: None)
  Receive Date: 20120314
  Receipt Date: 20120307
  Transmission Date: 20120608
  Serious: Yes (Hospitalization)
  Sender: FDA-Public Use
  Company Number: JP-GLAXOSMITHKLINE-B0770233A

PATIENT
  Sex: Male

DRUGS (3)
  1. AMLODIPINE BESYLATE + TELMISARTAN [Concomitant]
     Indication: HYPERTENSION
     Dosage: 1IUAX PER DAY
     Route: 048
     Dates: end: 20111129
  2. FLUTICASONE PROPIONATE/SALMETEROL [Suspect]
     Indication: BRONCHITIS CHRONIC
     Dosage: 500MCG PER DAY
     Route: 055
     Dates: start: 20100101, end: 20111215
  3. FEBUXOSTAT [Concomitant]
     Indication: HYPERURICAEMIA
     Route: 048
     Dates: end: 20111129

REACTIONS (2)
  - DRUG ERUPTION [None]
  - RASH [None]
